FAERS Safety Report 18703421 (Version 1)
Quarter: 2021Q1

REPORT INFORMATION
  Report Type: Spontaneous
  Country: US (occurrence: US)
  Receive Date: 20210106
  Receipt Date: 20210106
  Transmission Date: 20210419
  Serious: No
  Sender: FDA-Public Use
  Company Number: US-UNICHEM PHARMACEUTICALS (USA) INC-UCM202008-000937

PATIENT
  Age: 63 Year
  Sex: Female
  Weight: 81.64 kg

DRUGS (2)
  1. MELOXICAM. [Suspect]
     Active Substance: MELOXICAM
     Indication: INFLAMMATION
  2. MELOXICAM. [Suspect]
     Active Substance: MELOXICAM
     Indication: ARTHRALGIA
     Dosage: FIRST DOSE AT 02:10 PM AND NEXT DOSE AT 02:25 PM
     Dates: start: 20200812

REACTIONS (1)
  - Therapy non-responder [Unknown]
